FAERS Safety Report 5241079-7 (Version None)
Quarter: 2007Q1

REPORT INFORMATION
  Report Type: 
  Country: None (occurrence: None)
  Receive Date: 20070214
  Receipt Date: 20070214
  Transmission Date: 20070707
  Serious: Yes (Hospitalization)
  Sender: FDA-Public Use
  Company Number: None

PATIENT
  Age: 69 Year
  Sex: Male

DRUGS (19)
  1. HCTZ 25MG/ TRIAMTERENE [Suspect]
     Indication: HYPERTENSION
     Dosage: 2 TABS EVERY DAY
     Dates: start: 20031024, end: 20061012
  2. FLUOXETINE [Suspect]
     Indication: DEPRESSION
     Dosage: 1 DAILY
     Dates: start: 20040406, end: 20061012
  3. HYDROCHLOROTHIAZIDE 25/TRIAMTERENE [Concomitant]
  4. TRAVOPROST [Concomitant]
  5. DILTIAZEM [Concomitant]
  6. PSYLLIUM [Concomitant]
  7. CHLORPHENIRAMINE MALEATE [Concomitant]
  8. SIMVASTATIN [Concomitant]
  9. MULTI-VITAMIN [Concomitant]
  10. BISACODYL [Concomitant]
  11. DOCUSATE [Concomitant]
  12. EMULSION TOPICAL CREAM [Concomitant]
  13. LUBRICATING JELLY [Concomitant]
  14. PRAMOXINE HYDROCORTISONE RECTAL FOAM [Concomitant]
  15. RANITIDINE [Concomitant]
  16. BACLOFEN [Concomitant]
  17. FLUOXETINE [Concomitant]
  18. IBUPROFEN [Concomitant]
  19. METOPROLOL SUCCINATE [Concomitant]

REACTIONS (5)
  - FATIGUE [None]
  - HYPONATRAEMIA [None]
  - NAUSEA [None]
  - POLYDIPSIA [None]
  - POLYDIPSIA PSYCHOGENIC [None]
